FAERS Safety Report 6071615-2 (Version None)
Quarter: 2009Q1

REPORT INFORMATION
  Report Type: 
  Country: None (occurrence: None)
  Receive Date: 20090209
  Receipt Date: 20090209
  Transmission Date: 20090719
  Serious: Yes (Other)
  Sender: FDA-Public Use
  Company Number: None

PATIENT
  Age: 53 Year
  Sex: Female
  Weight: 43.3185 kg

DRUGS (1)
  1. LEVETIRACETAM [Suspect]
     Indication: CONVULSION
     Dosage: 250 MG. AT NIGHT ORAL/047 ONE TIME DAILY
     Route: 048

REACTIONS (2)
  - INSOMNIA [None]
  - PRODUCT QUALITY ISSUE [None]
